FAERS Safety Report 4616397-3 (Version None)
Quarter: 2005Q1

REPORT INFORMATION
  Report Type: 
  Country: None (occurrence: None)
  Receive Date: 20050321
  Receipt Date: 20050309
  Transmission Date: 20050727
  Serious: Yes (Other)
  Sender: FDA-Public Use
  Company Number: S05-USA-01284-01

PATIENT
  Age: 17 Year
  Sex: Male

DRUGS (3)
  1. CELEXA [Suspect]
     Indication: MAJOR DEPRESSION
     Dosage: 20 MG QD PO
     Route: 048
     Dates: end: 20050302
  2. CELEXA [Suspect]
     Indication: MAJOR DEPRESSION
     Dosage: 10 MG QD PO
     Route: 048
     Dates: start: 20050303, end: 20050304
  3. CELEXA [Suspect]
     Indication: MAJOR DEPRESSION
     Dosage: 10 MG QD PO
     Route: 048
     Dates: start: 20041201

REACTIONS (2)
  - BIPOLAR DISORDER [None]
  - MANIA [None]
